FAERS Safety Report 9697472 (Version 3)
Quarter: 2014Q1

REPORT INFORMATION
  Report Type: Spontaneous
  Country: DE (occurrence: DE)
  Receive Date: 20131120
  Receipt Date: 20140131
  Transmission Date: 20141002
  Serious: Yes (Other)
  Sender: FDA-Public Use
  Company Number: PHHY2013DE131684

PATIENT
  Age: 92 Year
  Sex: Female

DRUGS (2)
  1. ACLASTA [Suspect]
     Dosage: 5 MG
     Route: 042
  2. ACLASTA [Suspect]
     Dosage: 5 MG
     Route: 042

REACTIONS (1)
  - Cerebral disorder [Unknown]
